FAERS Safety Report 25788544 (Version 1)
Quarter: 2025Q3

REPORT INFORMATION
  Report Type: Spontaneous
  Country: US (occurrence: US)
  Receive Date: 20250910
  Receipt Date: 20250910
  Transmission Date: 20251021
  Serious: Yes (Other)
  Sender: NOVARTIS
  Company Number: US-002147023-NVSC2025US136729

PATIENT
  Age: 19 Year
  Sex: Male
  Weight: 82.3 kg

DRUGS (1)
  1. KYMRIAH [Suspect]
     Active Substance: TISAGENLECLEUCEL
     Indication: B-cell type acute leukaemia
     Route: 042
     Dates: start: 20240822, end: 20240822

REACTIONS (3)
  - Acute lymphocytic leukaemia recurrent [Unknown]
  - Post-depletion B-cell recovery [Unknown]
  - Weight increased [Unknown]
